FAERS Safety Report 8766932 (Version 2)
Quarter: 2012Q4

REPORT INFORMATION
  Report Type: 
  Country: US (occurrence: US)
  Receive Date: 20120903
  Receipt Date: 20121003
  Transmission Date: 20130627
  Serious: No
  Sender: FDA-Public Use
  Company Number: US-BAYER-2012-090221

PATIENT
  Age: 60 Year
  Sex: Female

DRUGS (1)
  1. CLIMARA [Suspect]
     Dosage: 0,05 mg
     Route: 062
     Dates: start: 20120823

REACTIONS (4)
  - Application site rash [Unknown]
  - Migraine [Unknown]
  - Abdominal distension [Unknown]
  - Product adhesion issue [Unknown]
